FAERS Safety Report 8422468-6 (Version None)
Quarter: 2012Q2

REPORT INFORMATION
  Report Type: 
  Country: None (occurrence: None)
  Receive Date: 20120608
  Receipt Date: 20120605
  Transmission Date: 20120825
  Serious: Yes (Hospitalization, Disabling, Other)
  Sender: FDA-Public Use
  Company Number: US-PFIZER INC-2010029310

PATIENT
  Sex: Female
  Weight: 61.224 kg

DRUGS (25)
  1. XANAX [Suspect]
     Indication: NERVOUSNESS
     Dosage: 0.5 MG, 1X/DAY
     Route: 048
     Dates: start: 20050101
  2. REGLAN [Concomitant]
     Dosage: UNK
  3. CLINDAMYCIN HYDROCHLORIDE [Concomitant]
     Dosage: 150 MG, 4X/DAY (TAKE 1 TABLET)
     Route: 048
  4. XANAX [Suspect]
     Dosage: 1 MG, 2X/DAY (TAKE 1 TABLET)
     Route: 048
  5. NORCO [Concomitant]
     Indication: PAIN
     Dosage: 10MG/325MG 3 OR 4 TIMES DAILY
  6. PAXIL [Concomitant]
     Dosage: 40 MG, DAILY (TAKE 1 TABLET)
     Route: 048
  7. ZANTAC [Concomitant]
     Dosage: 300 MG, 2X/DAY (1 TABLET)
  8. LYRICA [Suspect]
     Dosage: 225 MG, 2X/DAY
     Route: 048
  9. ISOSORBIDE MONONITRATE [Concomitant]
     Dosage: 10 MG, 2X/DAY (TAKE 1 TABLET)
     Route: 048
  10. METOPROLOL TARTRATE [Concomitant]
     Dosage: 50 MG, 2X/DAY (TAKE 1 TABLET)
     Route: 048
  11. PRAVACHOL [Concomitant]
     Dosage: 40 MG, (TAKE 1 TABLET AT BEDTIME)
     Route: 048
  12. MECLIZINE HYDROCHLORIDE [Concomitant]
     Dosage: 25 MG, 3X/DAY (ONE TABLET)
  13. SOMA [Concomitant]
     Dosage: 350 MG, 4X/DAY (TAKE 1 TABLET AS NEEDED)
  14. PRILOSEC [Concomitant]
     Dosage: 20 MG, 2X/DAY (TAKE 1 CAPSULE)
     Route: 048
  15. ATENOLOL [Concomitant]
     Dosage: UNK
  16. CARAFATE [Concomitant]
     Dosage: 1GM/10ML (TAKE 2 TEASPOONFUL BEFORE MEALS AND AT BED TIME)
     Route: 048
  17. DOCUSATE CALCIUM [Concomitant]
     Dosage: 240 MG, DAILY (TAKE 1 TABLET)
     Route: 048
  18. NITROGLYCERIN [Concomitant]
     Dosage: UNK
  19. NEXIUM [Concomitant]
     Dosage: UNK
  20. ZOFRAN [Concomitant]
     Indication: NAUSEA
     Dosage: 8 MG, AS NEEDED (TAKE 1 TABLET EVERY 6 HOURS)
  21. PROMETHAZINE HYDROCHLORIDE [Concomitant]
     Indication: VOMITING
  22. PROVENTIL GENTLEHALER [Concomitant]
     Dosage: 90 MCG/1 ACTUATION AS NEEDED (2 PUFFS FOUR TIMES DAILY)
  23. XANAX [Suspect]
     Dosage: 1 MG, 1X/DAY
     Route: 048
  24. LOMOTIL [Concomitant]
     Indication: DIARRHOEA
     Dosage: 2.5MG/0.025MG (ONE TABLET EVERY 4 HOURS)
  25. PROMETHAZINE HYDROCHLORIDE [Concomitant]
     Indication: NAUSEA
     Dosage: 50 MG, AS NEEDED (TAKE 1 TABLET PER 6 HOURS)
     Route: 048

REACTIONS (17)
  - GROIN ABSCESS [None]
  - SINUS TACHYCARDIA [None]
  - GENERALISED ANXIETY DISORDER [None]
  - LIFE SUPPORT [None]
  - RASH [None]
  - BACK PAIN [None]
  - DEPRESSION [None]
  - DIZZINESS [None]
  - GASTROOESOPHAGEAL REFLUX DISEASE [None]
  - INSOMNIA [None]
  - TYPE V HYPERLIPIDAEMIA [None]
  - CORONARY ARTERY DISEASE [None]
  - PAIN [None]
  - AMNESIA [None]
  - MIGRAINE WITHOUT AURA [None]
  - FIBROMYALGIA [None]
  - SYNCOPE [None]
